FAERS Safety Report 6001680-X (Version None)
Quarter: 2008Q4

REPORT INFORMATION
  Report Type: 
  Country: None (occurrence: None)
  Receive Date: 20081215
  Receipt Date: 20081201
  Transmission Date: 20090506
  Serious: No
  Sender: FDA-Public Use
  Company Number: US-B.I. PHARMACEUTICALS,INC./RIDGEFIELD-2008-BP-18078BP

PATIENT
  Sex: Female

DRUGS (5)
  1. ZANTAC 150 [Suspect]
     Indication: DYSPEPSIA
     Dosage: 150MG
     Route: 048
     Dates: start: 20081124, end: 20081127
  2. PREMARIN [Concomitant]
  3. POTASSIUM SUPPLEMENT [Concomitant]
  4. ASPIRIN [Concomitant]
  5. PRESERVATION WITH LUTEIN [Concomitant]

REACTIONS (1)
  - VOMITING [None]
